FAERS Safety Report 18689404 (Version 1)
Quarter: 2020Q4

REPORT INFORMATION
  Report Type: Spontaneous
  Country: RU (occurrence: RU)
  Receive Date: 20201231
  Receipt Date: 20201231
  Transmission Date: 20210114
  Serious: Yes (Hospitalization)
  Sender: FDA-Public Use
  Company Number: RU-JNJFOC-20201235472

PATIENT
  Age: 22 Year
  Sex: Female

DRUGS (3)
  1. OPSUMIT [Suspect]
     Active Substance: MACITENTAN
     Indication: PULMONARY ARTERIAL HYPERTENSION
     Route: 048
     Dates: start: 2018
  2. WARFARIN [Concomitant]
     Active Substance: WARFARIN
  3. RIOCIGUAT. [Concomitant]
     Active Substance: RIOCIGUAT
     Indication: PULMONARY ARTERIAL HYPERTENSION
     Dates: start: 201809

REACTIONS (6)
  - Dyspnoea [Unknown]
  - Hypoaesthesia [Unknown]
  - Pulmonary arterial pressure increased [Unknown]
  - Right ventricular dilatation [Unknown]
  - Respiratory tract infection viral [Unknown]
  - Pulmonary arterial hypertension [Unknown]

NARRATIVE: CASE EVENT DATE: 201809
